FAERS Safety Report 16940321 (Version 2)
Quarter: 2019Q4

REPORT INFORMATION
  Report Type: Spontaneous
  Country: DK (occurrence: DK)
  Receive Date: 20191021
  Receipt Date: 20191223
  Transmission Date: 20200122
  Serious: Yes (Other)
  Sender: FDA-Public Use
  Company Number: DK-PFIZER INC-2019442550

PATIENT
  Age: 37 Year
  Sex: Female

DRUGS (3)
  1. METHOTREXATE SODIUM. [Suspect]
     Active Substance: METHOTREXATE SODIUM
     Indication: SYSTEMIC LUPUS ERYTHEMATOSUS
     Dosage: UNK
     Dates: start: 201702, end: 201707
  2. PLAQUENIL [Concomitant]
     Active Substance: HYDROXYCHLOROQUINE SULFATE
     Indication: SYSTEMIC LUPUS ERYTHEMATOSUS
     Dosage: 400 MG, DAILY
     Route: 048
     Dates: start: 20170505
  3. SALAZOPYRIN [Suspect]
     Active Substance: SULFASALAZINE
     Indication: SYSTEMIC LUPUS ERYTHEMATOSUS
     Dosage: UNK
     Route: 048
     Dates: start: 201707, end: 201707

REACTIONS (13)
  - Product use in unapproved indication [Unknown]
  - Off label use [Unknown]
  - Ear swelling [Recovered/Resolved]
  - Pyrexia [Recovered/Resolved]
  - Lethargy [Unknown]
  - Urticaria [Recovered/Resolved]
  - Derealisation [Unknown]
  - Swelling face [Recovered/Resolved]
  - Lymphatic disorder [Unknown]
  - Hepatic enzyme increased [Unknown]
  - Pharyngeal swelling [Recovered/Resolved]
  - Drug hypersensitivity [Not Recovered/Not Resolved]
  - Fatigue [Unknown]

NARRATIVE: CASE EVENT DATE: 2017
